FAERS Safety Report 8137160-5 (Version None)
Quarter: 2012Q1

REPORT INFORMATION
  Report Type: 
  Country: None (occurrence: None)
  Receive Date: 20120215
  Receipt Date: 20120206
  Transmission Date: 20120608
  Serious: Yes (Hospitalization)
  Sender: FDA-Public Use
  Company Number: BR-AMGEN-BRASP2012008737

PATIENT
  Age: 49 Year
  Sex: Male
  Weight: 97 kg

DRUGS (1)
  1. ENBREL [Suspect]
     Indication: PSORIASIS
     Dosage: 50 MG, WEEKLY
     Route: 058
     Dates: start: 20111101

REACTIONS (5)
  - BLOOD PRESSURE ABNORMAL [None]
  - RASH MACULAR [None]
  - STRESS [None]
  - FEELING ABNORMAL [None]
  - HYPERTENSION [None]
